FAERS Safety Report 25482052 (Version 1)
Quarter: 2025Q2

REPORT INFORMATION
  Report Type: Report from Study
  Country: US (occurrence: US)
  Receive Date: 20250626
  Receipt Date: 20250626
  Transmission Date: 20250716
  Serious: Yes (Other)
  Sender: ABBVIE
  Company Number: US-ABBVIE-6341429

PATIENT
  Age: 32 Year
  Sex: Female

DRUGS (1)
  1. CREON [Suspect]
     Active Substance: PANCRELIPASE AMYLASE\PANCRELIPASE LIPASE\PANCRELIPASE PROTEASE
     Indication: Product used for unknown indication
     Route: 048
     Dates: start: 2015

REACTIONS (5)
  - Cholelithiasis [Unknown]
  - Product administration error [Not Recovered/Not Resolved]
  - Weight decreased [Not Recovered/Not Resolved]
  - Pancreatic duct obstruction [Recovered/Resolved]
  - Malabsorption [Unknown]

NARRATIVE: CASE EVENT DATE: 20150101
